FAERS Safety Report 9296365 (Version 2)
Quarter: 2013Q3

REPORT INFORMATION
  Report Type: Spontaneous
  Country: CY (occurrence: CY)
  Receive Date: 20130517
  Receipt Date: 20130722
  Transmission Date: 20140515
  Serious: Yes (Other)
  Sender: FDA-Public Use
  Company Number: CY-BAYER-2013-061395

PATIENT
  Age: 58 Year
  Sex: 0

DRUGS (1)
  1. ULTRAVIST [Suspect]
     Indication: COMPUTERISED TOMOGRAM ABDOMEN
     Dosage: 150 ML, ONCE
     Dates: start: 20130510, end: 20130510

REACTIONS (4)
  - Syncope [Unknown]
  - Convulsion [Unknown]
  - Hypersensitivity [Unknown]
  - Dyskinesia [Unknown]
